FAERS Safety Report 4358995-0 (Version None)
Quarter: 2004Q2

REPORT INFORMATION
  Report Type: 
  Country: None (occurrence: None)
  Receive Date: 20040512
  Receipt Date: 20040430
  Transmission Date: 20050107
  Serious: Yes (Hospitalization)
  Sender: FDA-Public Use
  Company Number: 2004-BP-03380RO

PATIENT
  Age: 69 Year
  Sex: Female
  Weight: 81.6 kg

DRUGS (7)
  1. AZATHIOPRINE [Suspect]
     Indication: POLYMYOSITIS
     Dosage: INCREASING DOSES FROM 1 TABLET TO 3 TABLETS/TID (50 MG), PO
     Route: 048
     Dates: start: 20040101
  2. METOPROLOL (METOPROLOL) [Concomitant]
  3. PLAVIX [Concomitant]
  4. PREDNISONE [Concomitant]
  5. ALTACE [Concomitant]
  6. ASPIRIN [Concomitant]
  7. PREVACID [Concomitant]

REACTIONS (2)
  - ABDOMINAL PAIN [None]
  - CHOLELITHIASIS [None]
